FAERS Safety Report 22338953 (Version 1)
Quarter: 2023Q2

REPORT INFORMATION
  Report Type: Spontaneous
  Country: GB (occurrence: GB)
  Receive Date: 20230518
  Receipt Date: 20230518
  Transmission Date: 20230722
  Serious: Yes (Other)
  Sender: FDA-Public Use
  Company Number: GB-MHRA-MED-202304232159482740-NZKRG

PATIENT
  Age: 3 Month
  Sex: Male
  Weight: 6 kg

DRUGS (1)
  1. LANSOPRAZOLE [Suspect]
     Active Substance: LANSOPRAZOLE
     Indication: Gastrooesophageal reflux disease
     Dosage: 7.5 MILLIGRAM, UNK
     Route: 065
     Dates: start: 20230317

REACTIONS (2)
  - Discoloured vomit [Not Recovered/Not Resolved]
  - Vomiting projectile [Unknown]

NARRATIVE: CASE EVENT DATE: 20230317
